FAERS Safety Report 9054973 (Version 3)
Quarter: 2013Q1

REPORT INFORMATION
  Report Type: Spontaneous
  Country: US (occurrence: US)
  Receive Date: 20130208
  Receipt Date: 20130313
  Transmission Date: 20140127
  Serious: No
  Sender: FDA-Public Use
  Company Number: US-VERTEX PHARMACEUTICALS INC.-2013-001741

PATIENT
  Age: 57 None
  Sex: Female
  Weight: 82 kg

DRUGS (6)
  1. INCIVEK [Suspect]
     Indication: HEPATITIS C
     Dosage: 750 MG, TID
     Route: 048
     Dates: start: 20130123
  2. RIBAVIRIN [Suspect]
     Indication: HEPATITIS C
     Dosage: 400 MG, BID
     Route: 048
     Dates: start: 20130123
  3. PEGASYS [Suspect]
     Indication: HEPATITIS C
     Dosage: 180 ?G, QW
     Route: 058
     Dates: start: 20130123
  4. TACROLIMUS [Concomitant]
  5. MUPIROCIN [Concomitant]
  6. LORATADINE [Concomitant]
     Dosage: 10 MG

REACTIONS (6)
  - Bacterial disease carrier [Unknown]
  - Influenza like illness [Unknown]
  - Pyrexia [Not Recovered/Not Resolved]
  - Chills [Not Recovered/Not Resolved]
  - Local swelling [Unknown]
  - Eczema [Not Recovered/Not Resolved]
